FAERS Safety Report 4906333-4 (Version None)
Quarter: 2006Q1

REPORT INFORMATION
  Report Type: 
  Country: None (occurrence: None)
  Receive Date: 20060209
  Receipt Date: 20060126
  Transmission Date: 20060701
  Serious: Yes (Other)
  Sender: FDA-Public Use
  Company Number: DE-JNJFOC-20060104740

PATIENT
  Sex: Male
  Weight: 24 kg

DRUGS (12)
  1. CONCERTA [Suspect]
     Route: 048
  2. BRONCHICUM NATTERMAN ELIXIR [Concomitant]
  3. BRONCHICUM NATTERMAN ELIXIR [Concomitant]
  4. BRONCHICUM NATTERMAN ELIXIR [Concomitant]
  5. BRONCHICUM NATTERMAN ELIXIR [Concomitant]
  6. BRONCHICUM NATTERMAN ELIXIR [Concomitant]
  7. BRONCHICUM NATTERMAN ELIXIR [Concomitant]
  8. BRONCHICUM NATTERMAN ELIXIR [Concomitant]
  9. BRONCHICUM NATTERMAN ELIXIR [Concomitant]
  10. BRONCHICUM NATTERMAN ELIXIR [Concomitant]
  11. BRONCHICUM NATTERMAN ELIXIR [Concomitant]
  12. BRONCHICUM NATTERMAN ELIXIR [Concomitant]

REACTIONS (3)
  - GAZE PALSY [None]
  - NASOPHARYNGITIS [None]
  - VISUAL DISTURBANCE [None]
